FAERS Safety Report 6296224-1 (Version None)
Quarter: 2009Q3

REPORT INFORMATION
  Report Type: 
  Country: None (occurrence: None)
  Receive Date: 20090804
  Receipt Date: 20090723
  Transmission Date: 20100115
  Serious: Yes (Other)
  Sender: FDA-Public Use
  Company Number: US-PFIZER INC-2009247981

PATIENT

DRUGS (1)
  1. VIBRAMYCIN [Suspect]

REACTIONS (3)
  - BLISTER [None]
  - LIP DISORDER [None]
  - SKIN BURNING SENSATION [None]
